FAERS Safety Report 5445847-8 (Version None)
Quarter: 2007Q3

REPORT INFORMATION
  Report Type: 
  Country: None (occurrence: None)
  Receive Date: 20070904
  Receipt Date: 20070822
  Transmission Date: 20080115
  Serious: Yes (Hospitalization)
  Sender: FDA-Public Use
  Company Number: 2007JP003878

PATIENT
  Age: 70 Year
  Sex: Female

DRUGS (34)
  1. FUNGUARD (MICAFUNGIN) INJECTION [Suspect]
  2. CEFDINIR [Suspect]
     Dosage: ORAL
     Route: 048
  3. ACLACINOIN (ACLARUBICIN HYDROCHLORIDE) INJECTION [Suspect]
  4. TARGOCID [Suspect]
  5. ZOLPIDEM TARTRATE [Suspect]
     Dosage: ORAL
     Route: 048
  6. DOGMATYL (SULPIRIDE) [Suspect]
  7. AUGMENTIN '125' [Concomitant]
  8. AMBISOME INJECTION [Concomitant]
  9. ITRACONAZOLE [Concomitant]
  10. CEFAZOLIN [Concomitant]
  11. FUNGIZONE [Concomitant]
  12. VANCOMYCIN HYDROCHLORIDE [Concomitant]
  13. VFEND [Concomitant]
  14. DIFLUCAN [Concomitant]
  15. ZYVOX [Concomitant]
  16. SULPERAZON (SULBACTAM SODIUM) INJECTION [Concomitant]
  17. MINOCYCLINE HCL [Concomitant]
  18. PIPERACILLIN SODIUM [Concomitant]
  19. POLYMYCIN B SULFATE [Concomitant]
  20. CHLOROMYCETIN [Concomitant]
  21. NOVANTRONE [Concomitant]
  22. METHOTREXATE [Concomitant]
  23. CYTARABINE [Concomitant]
  24. CRAVID (LEVOFLOXACIN) [Concomitant]
  25. ARTIST (CAVEDILOL) TABLET [Concomitant]
  26. VEPSID (ETOPOSIDE) INJECTION [Concomitant]
  27. TAZOCIN (PIPERACILLIN SODIUM, TAZOBACTAM SODIUM) INJECTION [Concomitant]
  28. MUCOSTA (REBAMIPIDE) [Concomitant]
  29. LANSOPRAZOLE [Concomitant]
  30. FLAGYL [Concomitant]
  31. MEDICON (DEXTROMETHORPHAN HYDROBROMIDE) [Concomitant]
  32. PARIET (RABEPRAZOLE SODIUM) TABLET [Concomitant]
  33. METHYCOBAL (MECOBALAMIN) [Concomitant]
  34. NEUQUINON (UBIDECARENONE) [Concomitant]

REACTIONS (4)
  - CONTUSION [None]
  - FALL [None]
  - HEAD INJURY [None]
  - LEUKOENCEPHALOPATHY [None]
